FAERS Safety Report 5191624-5 (Version None)
Quarter: 2006Q4

REPORT INFORMATION
  Report Type: 
  Country: None (occurrence: None)
  Receive Date: 20061219
  Receipt Date: 20061207
  Transmission Date: 20070319
  Serious: Yes (Other)
  Sender: FDA-Public Use
  Company Number: 2006152989

PATIENT
  Age: 69 Year
  Sex: Female

DRUGS (4)
  1. ALDACTONE [Suspect]
     Dosage: 25 MG, ORAL
     Route: 048
  2. DIGOXIN [Concomitant]
  3. ASPIRIN [Concomitant]
  4. CLARITIN [Concomitant]

REACTIONS (2)
  - BLOOD URIC ACID INCREASED [None]
  - BRAIN NATRIURETIC PEPTIDE INCREASED [None]
